FAERS Safety Report 6597724-7 (Version None)
Quarter: 2010Q1

REPORT INFORMATION
  Report Type: 
  Country: None (occurrence: None)
  Receive Date: 20100216
  Receipt Date: 20100202
  Transmission Date: 20100710
  Serious: Yes (Hospitalization, Other)
  Sender: FDA-Public Use
  Company Number: 230005M10DEU

PATIENT
  Age: 53 Year
  Sex: Female
  Weight: 52 kg

DRUGS (2)
  1. REBIF [Suspect]
     Indication: MULTIPLE SCLEROSIS
     Dosage: 44 MCG, 3 IN 1 WEEKS, SUBCUTANEOUS
     Route: 059
     Dates: start: 19980101, end: 20090603
  2. CARBAMAZEPINE [Concomitant]

REACTIONS (3)
  - DRUG HYPERSENSITIVITY [None]
  - INDURATION [None]
  - SCLEROEDEMA [None]
